FAERS Safety Report 12694310 (Version 1)
Quarter: 2016Q3

REPORT INFORMATION
  Report Type: Spontaneous
  Country: IT (occurrence: IT)
  Receive Date: 20160829
  Receipt Date: 20160829
  Transmission Date: 20161109
  Serious: Yes (Hospitalization)
  Sender: FDA-Public Use
  Company Number: PHHY2016IT115903

PATIENT
  Age: 76 Year
  Sex: Female

DRUGS (3)
  1. NEBIVOLOL. [Suspect]
     Active Substance: NEBIVOLOL
     Indication: DRUG ABUSE
     Dosage: 10 DF, ONCE/SINGLE
     Route: 048
     Dates: start: 20160707, end: 20160707
  2. LASIX [Suspect]
     Active Substance: FUROSEMIDE
     Indication: DRUG ABUSE
     Dosage: 10 DF, ONCE/SINGLE
     Route: 048
     Dates: start: 20160707, end: 20160707
  3. IBUPROFEN. [Suspect]
     Active Substance: IBUPROFEN
     Indication: DRUG ABUSE
     Dosage: 10 DF, ONCE/SINGLE
     Route: 048
     Dates: start: 20160707, end: 20160707

REACTIONS (4)
  - Sinus bradycardia [Unknown]
  - Toxicity to various agents [Unknown]
  - Drug abuse [Unknown]
  - Vomiting [Unknown]

NARRATIVE: CASE EVENT DATE: 20160708
